FAERS Safety Report 4475874-9 (Version None)
Quarter: 2004Q4

REPORT INFORMATION
  Report Type: 
  Country: None (occurrence: None)
  Receive Date: 20041012
  Receipt Date: 20041001
  Transmission Date: 20050328
  Serious: Yes (Hospitalization)
  Sender: FDA-Public Use
  Company Number: 200414507BCC

PATIENT
  Age: 60 Year
  Sex: Female
  Weight: 84.369 kg

DRUGS (2)
  1. LEMON-LIME ALKA-SELTZER [Suspect]
     Indication: VOMITING
     Dosage: 650 MG, QD, ORAL
     Route: 048
     Dates: end: 20040917
  2. NAPROXEN [Concomitant]

REACTIONS (5)
  - DIARRHOEA [None]
  - HAEMATEMESIS [None]
  - HAEMATOCHEZIA [None]
  - SYNCOPE [None]
  - ULCER HAEMORRHAGE [None]
